FAERS Safety Report 9736664 (Version 2)
Quarter: 2015Q3

REPORT INFORMATION
  Report Type: Spontaneous
  Country: US (occurrence: US)
  Receive Date: 20131206
  Receipt Date: 20150804
  Transmission Date: 20151125
  Serious: Yes (Hospitalization)
  Sender: FDA-Public Use
  Company Number: US-GILEAD-2009-0023254

PATIENT
  Age: 46 Year
  Sex: Female
  Weight: 50.8 kg

DRUGS (12)
  1. REVATIO [Concomitant]
     Active Substance: SILDENAFIL CITRATE
  2. LETAIRIS [Suspect]
     Active Substance: AMBRISENTAN
     Indication: PULMONARY ARTERIAL HYPERTENSION
     Route: 048
     Dates: start: 200707
  3. DARVON [Concomitant]
     Active Substance: PROPOXYPHENE HYDROCHLORIDE
  4. PREDNISONE. [Concomitant]
     Active Substance: PREDNISONE
  5. LEXAPRO [Concomitant]
     Active Substance: ESCITALOPRAM OXALATE
  6. COUMADIN [Concomitant]
     Active Substance: WARFARIN SODIUM
  7. XANAX [Concomitant]
     Active Substance: ALPRAZOLAM
  8. REMODULIN [Concomitant]
     Active Substance: TREPROSTINIL
  9. METOLAZONE. [Concomitant]
     Active Substance: METOLAZONE
  10. LASIX [Concomitant]
     Active Substance: FUROSEMIDE
  11. SPIRONOLACTONE. [Concomitant]
     Active Substance: SPIRONOLACTONE
  12. FENTANYL. [Concomitant]
     Active Substance: FENTANYL

REACTIONS (2)
  - Dyspnoea [Recovered/Resolved]
  - Fluid retention [Not Recovered/Not Resolved]

NARRATIVE: CASE EVENT DATE: 20090707
